FAERS Safety Report 8893423 (Version 1)
Quarter: 2012Q4

REPORT INFORMATION
  Report Type: 
  Country: AT (occurrence: AT)
  Receive Date: 20121108
  Receipt Date: 20121108
  Transmission Date: 20130627
  Serious: Yes (Life-Threatening, Other)
  Sender: FDA-Public Use
  Company Number: PHHY2012AT102210

PATIENT
  Age: 80 Year
  Sex: Female

DRUGS (2)
  1. ACLASTA [Suspect]
     Route: 042
  2. ANTIHYPERTENSIVES [Concomitant]

REACTIONS (4)
  - Feeling abnormal [Unknown]
  - Spinal pain [Unknown]
  - Nausea [Unknown]
  - Vertigo [Unknown]
